FAERS Safety Report 25006126 (Version 3)
Quarter: 2025Q1

REPORT INFORMATION
  Report Type: Spontaneous
  Country: US (occurrence: US)
  Receive Date: 20250224
  Receipt Date: 20250311
  Transmission Date: 20250409
  Serious: Yes (Other)
  Sender: PFIZER
  Company Number: US-PFIZER INC-202500040877

PATIENT
  Age: 74 Year
  Sex: Male

DRUGS (2)
  1. XELJANZ XR [Suspect]
     Active Substance: TOFACITINIB CITRATE
     Dosage: 11MG PO (PER ORAL) QD (ONCE A DAY)
     Route: 048
  2. XELJANZ XR [Suspect]
     Active Substance: TOFACITINIB CITRATE
     Dosage: 22MG PO (PER ORAL) QD (ONCE A DAY)
     Route: 048

REACTIONS (8)
  - Neoplasm malignant [Unknown]
  - Gastric haemorrhage [Not Recovered/Not Resolved]
  - Chills [Unknown]
  - Large intestine polyp [Unknown]
  - Blood glucose decreased [Unknown]
  - Gastrointestinal disorder [Unknown]
  - Loss of personal independence in daily activities [Unknown]
  - Product prescribing error [Unknown]
